FAERS Safety Report 13406942 (Version 4)
Quarter: 2017Q2

REPORT INFORMATION
  Report Type: Report from Study
  Country: US (occurrence: US)
  Receive Date: 20170405
  Receipt Date: 20170530
  Transmission Date: 20170830
  Serious: Yes (Hospitalization)
  Sender: FDA-Public Use
  Company Number: US-JNJFOC-20170401234

PATIENT
  Sex: Female

DRUGS (2)
  1. STELARA [Suspect]
     Active Substance: USTEKINUMAB
     Indication: CROHN^S DISEASE
     Route: 058
     Dates: start: 20161212
  2. STELARA [Suspect]
     Active Substance: USTEKINUMAB
     Indication: CROHN^S DISEASE
     Route: 058
     Dates: start: 20170427

REACTIONS (7)
  - Sepsis [Unknown]
  - Acidosis [Unknown]
  - Drug dose omission [Unknown]
  - Diarrhoea [Unknown]
  - Small intestinal stenosis [Recovering/Resolving]
  - Fistula [Unknown]
  - Drug ineffective [Unknown]
